FAERS Safety Report 18438183 (Version 1)
Quarter: 2020Q4

REPORT INFORMATION
  Report Type: Spontaneous
  Country: US (occurrence: US)
  Receive Date: 20201028
  Receipt Date: 20201028
  Transmission Date: 20210114
  Serious: Yes (Death, Hospitalization, Other)
  Sender: FDA-Public Use
  Company Number: US-PURDUE-USA-2020-0169159

PATIENT
  Age: 36 Year
  Sex: Male

DRUGS (4)
  1. OXYCONTIN [Suspect]
     Active Substance: OXYCODONE HYDROCHLORIDE
     Indication: PRODUCT USED FOR UNKNOWN INDICATION
     Dosage: UNK
     Route: 048
  2. HEROIN [Suspect]
     Active Substance: DIAMORPHINE
     Indication: PRODUCT USED FOR UNKNOWN INDICATION
     Route: 065
  3. FENTANYL. [Suspect]
     Active Substance: FENTANYL
     Indication: PRODUCT USED FOR UNKNOWN INDICATION
     Route: 065
  4. ALCOHOL. [Suspect]
     Active Substance: ALCOHOL
     Indication: PRODUCT USED FOR UNKNOWN INDICATION
     Route: 065

REACTIONS (20)
  - Mania [Unknown]
  - Depression [Unknown]
  - Overdose [Fatal]
  - Renal disorder [Unknown]
  - Liver disorder [Unknown]
  - Emotional distress [Unknown]
  - Anxiety [Unknown]
  - Suicidal ideation [Unknown]
  - Drug abuse [Unknown]
  - Brain death [Fatal]
  - Pain [Unknown]
  - Cardiac arrest [Unknown]
  - Infection [Unknown]
  - Psychotic disorder [Unknown]
  - Gastric disorder [Unknown]
  - Nightmare [Unknown]
  - Insomnia [Unknown]
  - Drug dependence [Unknown]
  - Hepatitis [Unknown]
  - Feeling of despair [Unknown]

NARRATIVE: CASE EVENT DATE: 20170119
